FAERS Safety Report 4784321-9 (Version None)
Quarter: 2005Q3

REPORT INFORMATION
  Report Type: 
  Country: None (occurrence: None)
  Receive Date: 20050928
  Receipt Date: 20050914
  Transmission Date: 20060218
  Serious: No
  Sender: FDA-Public Use
  Company Number: 217753

PATIENT
  Age: 11 Year
  Sex: Male
  Weight: 34 kg

DRUGS (1)
  1. NUTROPIN [Suspect]
     Indication: BODY HEIGHT BELOW NORMAL
     Dosage: 2 MG, 6/WEEK, SUBCUTANEOUS
     Route: 058
     Dates: start: 20040622

REACTIONS (5)
  - EXTRADURAL HAEMATOMA [None]
  - HEADACHE [None]
  - HYDROCEPHALUS [None]
  - NAUSEA [None]
  - VOMITING [None]
